FAERS Safety Report 12860641 (Version 1)
Quarter: 2016Q4

REPORT INFORMATION
  Report Type: Spontaneous
  Country: US (occurrence: US)
  Receive Date: 20161019
  Receipt Date: 20161019
  Transmission Date: 20170207
  Serious: No
  Sender: FDA-Public Use
  Company Number: US-TEVA-615447USA

PATIENT
  Age: 10 Year
  Sex: Female
  Weight: 40.86 kg

DRUGS (1)
  1. AMOXICILLIN W/CLAVULANIC ACID [Suspect]
     Active Substance: AMOXICILLIN\CLAVULANIC ACID
     Indication: CELLULITIS
     Dosage: 600MG/42.9 MG PER 5 ML
     Route: 048
     Dates: start: 20151126

REACTIONS (1)
  - Abdominal pain upper [Not Recovered/Not Resolved]
